FAERS Safety Report 24439072 (Version 6)
Quarter: 2024Q4

REPORT INFORMATION
  Report Type: Spontaneous
  Country: GB (occurrence: GB)
  Receive Date: 20241015
  Receipt Date: 20241121
  Transmission Date: 20250115
  Serious: Yes (Hospitalization, Other)
  Sender: PFIZER
  Company Number: GB-PFIZER INC-PV202400132325

PATIENT
  Age: 87 Year
  Sex: Male
  Weight: 63 kg

DRUGS (9)
  1. PAXLOVID [Suspect]
     Active Substance: NIRMATRELVIR\RITONAVIR
     Indication: COVID-19 treatment
     Dosage: [NIRMATRELVIR 300 MG]/[RITONAVIR 100 MG]; 2X/DAY
     Route: 048
     Dates: start: 20241010, end: 20241010
  2. PAXLOVID [Suspect]
     Active Substance: NIRMATRELVIR\RITONAVIR
     Dosage: [NIRMATRELVIR 150 MG]/[RITONAVIR 100 MG]; 2X/DAY
     Route: 048
     Dates: start: 20241011, end: 20241015
  3. EDOXABAN [Concomitant]
     Active Substance: EDOXABAN
     Indication: Atrial fibrillation
     Dosage: 30 MG, 1X/DAY
  4. ALLOPURINOL [Concomitant]
     Active Substance: ALLOPURINOL
     Indication: Hypertension
     Dosage: 100 MG, 1X/DAY
  5. DOCUSATE [Concomitant]
     Active Substance: DOCUSATE
     Indication: Constipation
     Dosage: 100 MG, 1X/DAY
  6. DORZOLAMIDE [Concomitant]
     Active Substance: DORZOLAMIDE
     Indication: Glaucoma
     Dosage: 20 MG, 2X/DAY
  7. BIMATOPROST\TIMOLOL [Concomitant]
     Active Substance: BIMATOPROST\TIMOLOL
     Indication: Glaucoma
     Dosage: 300 UG, 2X/DAY
  8. ACETAMINOPHEN [Concomitant]
     Active Substance: ACETAMINOPHEN
     Indication: Pain
     Dosage: 1 G, AS NEEDED
  9. LENALIDOMIDE [Concomitant]
     Active Substance: LENALIDOMIDE
     Indication: Plasma cell myeloma
     Dosage: 3 WEEKLY COURSE, OD

REACTIONS (11)
  - Neutropenic sepsis [Recovered/Resolved]
  - Acute kidney injury [Recovered/Resolved]
  - Dyspnoea [Recovered/Resolved]
  - Hypotension [Recovered/Resolved]
  - Pancytopenia [Recovered/Resolved]
  - Gout [Recovered/Resolved]
  - Bacterial infection [Unknown]
  - Accidental overdose [Unknown]
  - Product dispensing error [Unknown]
  - Product packaging confusion [Unknown]
  - Product label issue [Unknown]

NARRATIVE: CASE EVENT DATE: 20240101
